FAERS Safety Report 12693906 (Version 1)
Quarter: 2016Q3

REPORT INFORMATION
  Report Type: Spontaneous
  Country: GB (occurrence: GB)
  Receive Date: 20160829
  Receipt Date: 20160829
  Transmission Date: 20161109
  Serious: Yes (Other)
  Sender: FDA-Public Use
  Company Number: GB-009507513-1608GBR013160

PATIENT
  Sex: Male

DRUGS (2)
  1. VALPROATE SODIUM. [Suspect]
     Active Substance: VALPROATE SODIUM
  2. ERTAPENEM SODIUM [Suspect]
     Active Substance: ERTAPENEM SODIUM

REACTIONS (2)
  - Seizure [Unknown]
  - Inhibitory drug interaction [Unknown]
